FAERS Safety Report 23798811 (Version 2)
Quarter: 2024Q2

REPORT INFORMATION
  Report Type: Spontaneous
  Country: US (occurrence: US)
  Receive Date: 20240430
  Receipt Date: 20240509
  Transmission Date: 20240715
  Serious: Yes (Hospitalization, Other)
  Sender: FDA-Public Use
  Company Number: US-ALEMBIC-2024SCAL000519

PATIENT

DRUGS (1)
  1. VENLAFAXINE [Suspect]
     Active Substance: VENLAFAXINE HYDROCHLORIDE
     Indication: Product used for unknown indication
     Dosage: 60+ 75 MG PILLS.
     Route: 048

REACTIONS (6)
  - Lactic acidosis [Unknown]
  - Respiratory acidosis [Unknown]
  - Blood creatine phosphokinase increased [Unknown]
  - Suicide attempt [Unknown]
  - Seizure [Unknown]
  - Intentional overdose [Unknown]
